FAERS Safety Report 23956693 (Version 1)
Quarter: 2024Q2

REPORT INFORMATION
  Report Type: Spontaneous
  Country: US (occurrence: None)
  Receive Date: 20240608
  Receipt Date: 20240608
  Transmission Date: 20240716
  Serious: Yes (Hospitalization)
  Sender: FDA-Public Use
  Company Number: None

PATIENT
  Age: 65 Year
  Sex: Male
  Weight: 111.4 kg

DRUGS (4)
  1. FLUOROURACIL [Suspect]
     Active Substance: FLUOROURACIL
     Dates: end: 20240605
  2. LEUCOVORIN CALCIUM [Suspect]
     Active Substance: LEUCOVORIN CALCIUM
     Dates: end: 20240605
  3. NIVOLUMAB [Suspect]
     Active Substance: NIVOLUMAB
     Dates: end: 20240605
  4. ELOXATIN [Suspect]
     Active Substance: OXALIPLATIN
     Dates: end: 20240605

REACTIONS (14)
  - Angina pectoris [None]
  - Pneumonia [None]
  - Headache [None]
  - Dyspnoea [None]
  - Hypoxia [None]
  - Sinus tachycardia [None]
  - Pneumonia [None]
  - White blood cell count increased [None]
  - Blood lactic acid increased [None]
  - Metastases to lung [None]
  - Metastatic neoplasm [None]
  - Condition aggravated [None]
  - Lymphadenopathy [None]
  - Retroperitoneal lymphadenopathy [None]

NARRATIVE: CASE EVENT DATE: 20240605
